FAERS Safety Report 23069420 (Version 1)
Quarter: 2023Q4

REPORT INFORMATION
  Report Type: Spontaneous
  Country: US (occurrence: US)
  Receive Date: 20231016
  Receipt Date: 20231016
  Transmission Date: 20240110
  Serious: Yes (Hospitalization, Other)
  Sender: FDA-Public Use
  Company Number: US-drreddys-SPO/USA/23/0179568

PATIENT
  Age: 55 Year
  Sex: Female

DRUGS (1)
  1. CLOZAPINE [Suspect]
     Active Substance: CLOZAPINE
     Indication: Product used for unknown indication
     Dosage: 200MG MORNING/ 150MG NIGHTLY
     Route: 048

REACTIONS (3)
  - Mental status changes [Unknown]
  - Neutropenia [Unknown]
  - Fall [Unknown]

NARRATIVE: CASE EVENT DATE: 20230101
